FAERS Safety Report 23275901 (Version 3)
Quarter: 2024Q3

REPORT INFORMATION
  Report Type: Spontaneous
  Country: IT (occurrence: IT)
  Receive Date: 20231208
  Receipt Date: 20240927
  Transmission Date: 20241016
  Serious: No
  Sender: NOVARTIS
  Company Number: IT-Blueprint Medicines Corporation-LT-IT-2023-001940

PATIENT
  Age: 61 Year
  Sex: Male

DRUGS (1)
  1. MIDOSTAURIN [Suspect]
     Active Substance: MIDOSTAURIN
     Indication: Mastocytic leukaemia
     Dosage: 50 MG, BID
     Route: 065
     Dates: start: 202107, end: 202109

REACTIONS (1)
  - Therapy non-responder [Unknown]
